FAERS Safety Report 19442970 (Version 1)
Quarter: 2021Q2

REPORT INFORMATION
  Report Type: Spontaneous
  Country: US (occurrence: US)
  Receive Date: 20210620
  Receipt Date: 20210620
  Transmission Date: 20210717
  Serious: Yes (Other)
  Sender: FDA-Public Use
  Company Number: None

PATIENT
  Age: 31 Year
  Sex: Female
  Weight: 54.45 kg

DRUGS (2)
  1. BUPRENORPHINE 8MG TABLET AKORN [Suspect]
     Active Substance: BUPRENORPHINE
     Indication: DRUG DEPENDENCE
     Dosage: ?          QUANTITY:2.25 TABLET(S);?
     Route: 060
     Dates: start: 20210612, end: 20210620
  2. ADVIL [Concomitant]
     Active Substance: IBUPROFEN

REACTIONS (9)
  - Malaise [None]
  - Product taste abnormal [None]
  - Hyperhidrosis [None]
  - Restless legs syndrome [None]
  - Oral mucosal erythema [None]
  - Product substitution issue [None]
  - Oral discomfort [None]
  - Withdrawal syndrome [None]
  - Migraine [None]

NARRATIVE: CASE EVENT DATE: 20210612
